FAERS Safety Report 6829820-0 (Version None)
Quarter: 2010Q3

REPORT INFORMATION
  Report Type: 
  Country: None (occurrence: None)
  Receive Date: 20100706
  Receipt Date: 20100621
  Transmission Date: 20110219
  Serious: Yes (Other)
  Sender: FDA-Public Use
  Company Number: AUR-APL-2010-01674

PATIENT
  Age: 56 Year
  Sex: Male
  Weight: 90.7 kg

DRUGS (10)
  1. METFORMIN [Suspect]
     Indication: DIABETES MELLITUS
  2. GABAPENTIN CAPSULE (GREENSTONE) [Suspect]
     Indication: GASTRIC DISORDER
     Dosage: 800MG, QID, ORAL
     Route: 048
     Dates: start: 20100101
  3. GABAPENTIN CAPSULE (GREENSTONE) [Suspect]
     Indication: NEUROPATHY PERIPHERAL
     Dosage: 800MG, QID, ORAL
     Route: 048
     Dates: start: 20100101
  4. NEURONTIN [Suspect]
     Indication: GASTRIC DISORDER
     Dosage: ORAL
     Route: 048
     Dates: start: 20050101
  5. NEURONTIN [Suspect]
     Indication: NEUROPATHY PERIPHERAL
     Dosage: ORAL
     Route: 048
     Dates: start: 20050101
  6. FENTANYL CITRATE [Suspect]
     Indication: GASTRIC DISORDER
     Dosage: 0.25MG, Q3D, TRANSDERMAL
     Route: 062
  7. FENTANYL CITRATE [Suspect]
     Indication: NEUROPATHY PERIPHERAL
     Dosage: 0.25MG, Q3D, TRANSDERMAL
     Route: 062
  8. KEFLEX [Suspect]
     Indication: SINUSITIS
     Dosage: 1500MG, TID, ORAL
     Route: 048
  9. VICODIN [Suspect]
     Indication: GASTRIC DISORDER
     Dosage: 10/650MG, 1.5 TAB TID, ORAL
     Route: 048
  10. VICODIN [Suspect]
     Indication: NEUROPATHY PERIPHERAL
     Dosage: 10/650MG, 1.5 TAB TID, ORAL
     Route: 048

REACTIONS (13)
  - ABDOMINAL PAIN UPPER [None]
  - AGGRESSION [None]
  - AMNESIA [None]
  - CONSTIPATION [None]
  - DRUG INEFFECTIVE [None]
  - DRUG INTERACTION [None]
  - DYSURIA [None]
  - FATIGUE [None]
  - HAND FRACTURE [None]
  - HYPERSOMNIA [None]
  - LIVER DISORDER [None]
  - MOOD ALTERED [None]
  - PRODUCT SUBSTITUTION ISSUE [None]
